FAERS Safety Report 11663008 (Version 1)
Quarter: 2015Q4

REPORT INFORMATION
  Report Type: Spontaneous
  Country: US (occurrence: None)
  Receive Date: 20151023
  Receipt Date: 20151023
  Transmission Date: 20160304
  Serious: Yes (Death)
  Sender: FDA-Public Use
  Company Number: None

PATIENT
  Age: 22 Year
  Sex: Male

DRUGS (12)
  1. VITAMIN D [Concomitant]
     Active Substance: CHOLECALCIFEROL
  2. METOPROLOL [Concomitant]
     Active Substance: METOPROLOL
  3. SUDESONIDE [Concomitant]
  4. AZITHROMYCIN [Concomitant]
     Active Substance: AZITHROMYCIN ANHYDROUS
  5. PULMOZYME [Suspect]
     Active Substance: DORNASE ALFA
     Indication: CYSTIC FIBROSIS
     Dosage: 2.5MG/2.5 ML
     Route: 055
     Dates: start: 20140124, end: 20151022
  6. CELEXA [Concomitant]
     Active Substance: CITALOPRAM HYDROBROMIDE
  7. URSODIOL. [Concomitant]
     Active Substance: URSODIOL
  8. ZENPEP [Concomitant]
     Active Substance: PANCRELIPASE\PANCRELIPASE AMYLASE\PANCRELIPASE LIPASE\PANCRELIPASE PROTEASE
  9. TOBRAMYCIN 300 MG/5ML NOVARTIS [Suspect]
     Active Substance: TOBRAMYCIN
     Dosage: 300MG/5ML
     Route: 055
     Dates: start: 20140327, end: 20151022
  10. PANTOPRAZOLE [Concomitant]
     Active Substance: PANTOPRAZOLE SODIUM
  11. COLISTIN [Concomitant]
     Active Substance: COLISTIN
  12. VANCOMYCIN [Concomitant]
     Active Substance: VANCOMYCIN

REACTIONS (1)
  - Death [None]

NARRATIVE: CASE EVENT DATE: 20151022
